FAERS Safety Report 6879952-6 (Version None)
Quarter: 2010Q3

REPORT INFORMATION
  Report Type: 
  Country: None (occurrence: None)
  Receive Date: 20100728
  Receipt Date: 20100722
  Transmission Date: 20110219
  Serious: Yes (Death, Hospitalization, Other)
  Sender: FDA-Public Use
  Company Number: US-AMGEN-KDC426324

PATIENT
  Age: 71 Year
  Sex: Male
  Weight: 66.9 kg

DRUGS (3)
  1. PANITUMUMAB [Suspect]
     Indication: PANCREATIC CARCINOMA
     Route: 042
     Dates: start: 20100511, end: 20100720
  2. GEMCITABINE [Suspect]
     Route: 042
     Dates: start: 20100511, end: 20100720
  3. TARCEVA [Suspect]
     Route: 048
     Dates: start: 20100511, end: 20100713

REACTIONS (6)
  - DEATH [None]
  - DEHYDRATION [None]
  - DIARRHOEA [None]
  - HYPONATRAEMIA [None]
  - HYPOPHOSPHATAEMIA [None]
  - HYPOTENSION [None]
